FAERS Safety Report 7418516-2 (Version None)
Quarter: 2011Q2

REPORT INFORMATION
  Report Type: 
  Country: None (occurrence: None)
  Receive Date: 20110415
  Receipt Date: 20110215
  Transmission Date: 20111010
  Serious: No
  Sender: FDA-Public Use
  Company Number: US-B.I. PHARMACEUTICALS,INC./RIDGEFIELD-2011-BP-05602BP

PATIENT
  Sex: Female

DRUGS (9)
  1. LIPITOR [Concomitant]
     Indication: BLOOD CHOLESTEROL INCREASED
  2. FISH OIL [Concomitant]
     Indication: PROPHYLAXIS
  3. HYDROCHLOROTHIAZIDE [Concomitant]
     Indication: HYPERTENSION
  4. CITRACAL [Concomitant]
     Indication: PROPHYLAXIS
  5. VITAMINS [Concomitant]
     Indication: PROPHYLAXIS
  6. PRADAXA [Suspect]
     Indication: ATRIAL FIBRILLATION
     Dosage: 300 MG
     Route: 048
     Dates: start: 20110101
  7. SOTALOL HCL [Concomitant]
     Indication: ATRIAL FIBRILLATION
  8. LISINOPRIL [Concomitant]
     Indication: HYPERTENSION
  9. CO Q10 [Concomitant]
     Indication: PROPHYLAXIS

REACTIONS (1)
  - BLADDER PAIN [None]
